FAERS Safety Report 16161595 (Version 2)
Quarter: 2020Q2

REPORT INFORMATION
  Report Type: Spontaneous
  Country: ES (occurrence: ES)
  Receive Date: 20190405
  Receipt Date: 20200618
  Transmission Date: 20200713
  Serious: Yes (Life-Threatening, Hospitalization)
  Sender: FDA-Public Use
  Company Number: ES-ACCORD-118753

PATIENT
  Age: 37 Year
  Sex: Female
  Weight: 88 kg

DRUGS (6)
  1. LITIO [Concomitant]
     Active Substance: LITHIUM CARBONATE
     Dosage: DOSAGE UNIT FREQUENCY: 400 MG-MILLIGRAMS, FREQUENCY 1 DAY
     Route: 048
     Dates: start: 2011, end: 20140915
  2. DIAZEPAM. [Concomitant]
     Active Substance: DIAZEPAM
     Dosage: DOSAGE UNIT FREQUENCY: 10 MG-MILLIGRAMS, FREQUENCY
     Route: 048
     Dates: start: 2001, end: 20140915
  3. SERDOLECT [Concomitant]
     Active Substance: SERTINDOLE
     Dosage: DOSAGE UNIT FREQUENCY: 24 MG-MILLIGRAMS, FREQUENCY 1 DAY
     Route: 048
     Dates: start: 2013, end: 20140912
  4. ABILIFY [Suspect]
     Active Substance: ARIPIPRAZOLE
     Indication: PRODUCT USED FOR UNKNOWN INDICATION
     Dosage: DOSAGE UNIT FREQUENCY: 30 MG-MILLIGRAMS, FREQUENCY UNIT: 1 DAY
     Route: 048
     Dates: start: 2009, end: 20140915
  5. TOPIRAMATE. [Suspect]
     Active Substance: TOPIRAMATE
     Indication: PRODUCT USED FOR UNKNOWN INDICATION
     Dosage: DOSAGE UNIT FREQUENCY: 30 MG-MILLIGRAMS, FREQUENCY
     Route: 048
     Dates: start: 2011, end: 20140915
  6. LITHIUM. [Concomitant]
     Active Substance: LITHIUM
     Dosage: UNIT DOSE FREQUENCY: 400 MG-MILLIGRAMS FREQUENCY UNIT: 1 DAY
     Dates: start: 2011, end: 20140915

REACTIONS (1)
  - Agranulocytosis [Recovered/Resolved]

NARRATIVE: CASE EVENT DATE: 20140902
